FAERS Safety Report 8839699 (Version 1)
Quarter: 2012Q4

REPORT INFORMATION
  Report Type: Spontaneous
  Country: US (occurrence: None)
  Receive Date: 20121012
  Receipt Date: 20121012
  Transmission Date: 20130627
  Serious: Yes (Hospitalization, Other)
  Sender: FDA-Public Use
  Company Number: None

PATIENT
  Age: 61 Year
  Sex: Female
  Weight: 81.65 kg

DRUGS (2)
  1. PEG 3350 AND ELECTROLYTES [Suspect]
     Indication: COLONOSCOPY
     Dosage: 1 BOTTLE 4-6 OZS 5-10 MIN BOWEL MOVEMENT
     Dates: start: 20120809
  2. NULYTELY [Suspect]

REACTIONS (7)
  - Burning sensation [None]
  - Skin exfoliation [None]
  - Musculoskeletal pain [None]
  - Laceration [None]
  - Wound [None]
  - Skin exfoliation [None]
  - Post procedural complication [None]
